FAERS Safety Report 12961468 (Version 5)
Quarter: 2017Q2

REPORT INFORMATION
  Report Type: Spontaneous
  Country: JP (occurrence: JP)
  Receive Date: 20161121
  Receipt Date: 20170410
  Transmission Date: 20170830
  Serious: Yes (Hospitalization, Other)
  Sender: FDA-Public Use
  Company Number: JP-BRISTOL-MYERS SQUIBB COMPANY-BMS-2016-053785

PATIENT
  Age: 39 Year
  Sex: Female

DRUGS (13)
  1. ABILIFY [Suspect]
     Active Substance: ARIPIPRAZOLE
     Indication: PSYCHOMOTOR HYPERACTIVITY
     Dosage: 24 MG, QD
     Route: 048
     Dates: start: 20160803, end: 20161008
  2. ABILIFY [Suspect]
     Active Substance: ARIPIPRAZOLE
     Indication: PSYCHOMOTOR HYPERACTIVITY
     Dosage: 12 MG, QD, BEDTIME
     Route: 065
     Dates: start: 20160727, end: 20160801
  3. LENDORMIN [Suspect]
     Active Substance: BROTIZOLAM
     Indication: INSOMNIA
     Dosage: 1 DF, UNK
     Route: 048
  4. BELSOMRA [Suspect]
     Active Substance: SUVOREXANT
     Indication: PRODUCT USED FOR UNKNOWN INDICATION
     Dosage: 1 DF, QD, BED TIME
     Route: 065
     Dates: start: 20160701, end: 20160713
  5. METHYCOBAL [Suspect]
     Active Substance: METHYLCOBALAMIN
     Indication: PRODUCT USED FOR UNKNOWN INDICATION
     Dosage: 1 DF, TID
     Route: 065
     Dates: start: 20160624, end: 20160721
  6. ABILIFY [Suspect]
     Active Substance: ARIPIPRAZOLE
     Indication: DELUSION
     Dosage: 12 MG, QD, BEDTIME
     Route: 048
     Dates: start: 20160617, end: 20160623
  7. ABILIFY [Suspect]
     Active Substance: ARIPIPRAZOLE
     Indication: HALLUCINATION
     Dosage: 1 DF, QD
     Route: 048
  8. ABILIFY [Suspect]
     Active Substance: ARIPIPRAZOLE
     Indication: DELUSION
     Route: 065
  9. ABILIFY [Suspect]
     Active Substance: ARIPIPRAZOLE
     Indication: HALLUCINATION
     Dosage: 12 MG, QD, AFTER BREAKFAST
     Route: 065
     Dates: start: 20160802, end: 20160802
  10. ABILIFY [Suspect]
     Active Substance: ARIPIPRAZOLE
     Indication: PSYCHOMOTOR HYPERACTIVITY
     Route: 065
  11. ABILIFY [Suspect]
     Active Substance: ARIPIPRAZOLE
     Indication: DELUSION
     Dosage: 24 MG, QD
     Route: 048
     Dates: start: 20160620, end: 20160726
  12. ABILIFY [Suspect]
     Active Substance: ARIPIPRAZOLE
     Indication: SCHIZOPHRENIA
     Dosage: 6 MG, QD
     Route: 048
     Dates: end: 201606
  13. ABILIFY [Suspect]
     Active Substance: ARIPIPRAZOLE
     Indication: HALLUCINATION
     Dosage: 24 MG, QD
     Route: 048
     Dates: start: 20161014, end: 20161027

REACTIONS (10)
  - Insomnia [Unknown]
  - Speech disorder [Unknown]
  - Live birth [Unknown]
  - Psychomotor hyperactivity [Unknown]
  - Restlessness [Unknown]
  - Stupor [Unknown]
  - Psychiatric symptom [Unknown]
  - Caesarean section [Unknown]
  - Abnormal behaviour [Unknown]
  - Maternal exposure during pregnancy [Recovered/Resolved]

NARRATIVE: CASE EVENT DATE: 20161007
